FAERS Safety Report 8806886 (Version 2)
Quarter: 2015Q2

REPORT INFORMATION
  Report Type: Report from Study
  Country: US (occurrence: US)
  Receive Date: 20120925
  Receipt Date: 20150622
  Transmission Date: 20150821
  Serious: Yes (Death)
  Sender: FDA-Public Use
  Company Number: US-ROCHE-1125920

PATIENT
  Age: 69 Year
  Sex: Female
  Weight: 76.6 kg

DRUGS (9)
  1. DECADRON [Concomitant]
     Active Substance: DEXAMETHASONE
     Route: 042
  2. BENADRYL [Concomitant]
     Active Substance: DIPHENHYDRAMINE HYDROCHLORIDE
     Route: 042
  3. COUMADINE [Concomitant]
     Active Substance: WARFARIN SODIUM
     Route: 048
  4. TAXOL [Concomitant]
     Active Substance: PACLITAXEL
     Dosage: 3 OF 4 WEEKS
     Route: 065
     Dates: start: 200312, end: 200402
  5. TAXOL [Concomitant]
     Active Substance: PACLITAXEL
     Route: 065
     Dates: start: 200511, end: 200512
  6. AVASTIN [Suspect]
     Active Substance: BEVACIZUMAB
     Indication: BREAST CANCER FEMALE
     Route: 042
     Dates: start: 20051021, end: 200512
  7. CIMETIDINE [Concomitant]
     Active Substance: CIMETIDINE
     Route: 042
  8. PEPCID [Concomitant]
     Active Substance: FAMOTIDINE
     Route: 042
  9. ASPIRIN. [Concomitant]
     Active Substance: ASPIRIN

REACTIONS (10)
  - Pain [Unknown]
  - Fatigue [Unknown]
  - Off label use [Unknown]
  - Malaise [Unknown]
  - Stomatitis [Unknown]
  - Death [Fatal]
  - Paraesthesia [Unknown]
  - Disease progression [Unknown]
  - Dizziness [Unknown]
  - Memory impairment [Unknown]

NARRATIVE: CASE EVENT DATE: 20060728
